FAERS Safety Report 4452190-2 (Version None)
Quarter: 2004Q3

REPORT INFORMATION
  Report Type: 
  Country: None (occurrence: None)
  Receive Date: 20040916
  Receipt Date: 20040916
  Transmission Date: 20050211
  Serious: Yes (Hospitalization)
  Sender: FDA-Public Use
  Company Number: None

PATIENT
  Sex: Female
  Weight: 69.1 kg

DRUGS (2)
  1. ERTAPENEM [Suspect]
     Indication: ABDOMINAL INFECTION
     Dosage: 1000MG  Q24H  INTRAVENOUS
     Route: 042
  2. ERTAPENEM [Suspect]
     Indication: URINARY TRACT INFECTION
     Dosage: 1000MG  Q24H  INTRAVENOUS
     Route: 042

REACTIONS (2)
  - FEELING ABNORMAL [None]
  - TARDIVE DYSKINESIA [None]
